FAERS Safety Report 19764484 (Version 1)
Quarter: 2021Q3

REPORT INFORMATION
  Report Type: Spontaneous
  Country: PT (occurrence: PT)
  Receive Date: 20210831
  Receipt Date: 20210831
  Transmission Date: 20211014
  Serious: Yes (Hospitalization, Other)
  Sender: FDA-Public Use
  Company Number: PT-SCIEGENPHARMA-2021SCILIT00696

PATIENT
  Age: 43 Year
  Sex: Female

DRUGS (3)
  1. ZOTEPINE [Interacting]
     Active Substance: ZOTEPINE
     Indication: TOXIC SKIN ERUPTION
     Route: 065
  2. DIAZEPAM. [Concomitant]
     Active Substance: DIAZEPAM
     Indication: PSYCHOTIC SYMPTOM
     Route: 065
  3. ARIPIPRAZOLE. [Suspect]
     Active Substance: ARIPIPRAZOLE
     Indication: PSYCHOTIC SYMPTOM
     Route: 065

REACTIONS (1)
  - Toxic skin eruption [Recovered/Resolved]
